FAERS Safety Report 23861045 (Version 1)
Quarter: 2024Q2

REPORT INFORMATION
  Report Type: Spontaneous
  Country: US (occurrence: US)
  Receive Date: 20240516
  Receipt Date: 20240516
  Transmission Date: 20240716
  Serious: No
  Sender: FDA-Public Use
  Company Number: US-UCBSA-2023025614

PATIENT
  Sex: Female

DRUGS (3)
  1. NEUPRO [Suspect]
     Active Substance: ROTIGOTINE
     Indication: Parkinson^s disease
     Dosage: 2 MILLIGRAM
  2. NEUPRO [Suspect]
     Active Substance: ROTIGOTINE
     Dosage: 4 MILLIGRAM
  3. NEUPRO [Suspect]
     Active Substance: ROTIGOTINE
     Dosage: 3 MILLIGRAM

REACTIONS (2)
  - Heart rate increased [Not Recovered/Not Resolved]
  - Feeling jittery [Not Recovered/Not Resolved]
